FAERS Safety Report 10189789 (Version 4)
Quarter: 2014Q4

REPORT INFORMATION
  Report Type: Spontaneous
  Country: IL (occurrence: IL)
  Receive Date: 20140522
  Receipt Date: 20141010
  Transmission Date: 20150528
  Serious: Yes (Other)
  Sender: FDA-Public Use
  Company Number: IL-VERTEX PHARMACEUTICALS INC-2014-002420

PATIENT
  Age: 64 Year
  Sex: Female

DRUGS (2)
  1. INCIVO [Suspect]
     Active Substance: TELAPREVIR
     Indication: HEPATITIS C
     Dosage: UNK
     Route: 048
     Dates: start: 20140401, end: 20140611
  2. RIBAVIRIN. [Suspect]
     Active Substance: RIBAVIRIN
     Indication: HEPATITIS C
     Route: 065
     Dates: end: 20140916

REACTIONS (17)
  - Insomnia [Unknown]
  - Restlessness [Unknown]
  - Leukopenia [Unknown]
  - Dysgeusia [Unknown]
  - Diarrhoea [Unknown]
  - Anxiety [Unknown]
  - Stress [Unknown]
  - Swelling face [Unknown]
  - Pruritus [Unknown]
  - Rash [Not Recovered/Not Resolved]
  - Dry skin [Unknown]
  - Nervousness [Unknown]
  - Nervous system disorder [Unknown]
  - Tongue disorder [Unknown]
  - Panic attack [Unknown]
  - Anaemia [Unknown]
  - Peripheral swelling [Unknown]
